FAERS Safety Report 7009671-7 (Version None)
Quarter: 2010Q3

REPORT INFORMATION
  Report Type: 
  Country: None (occurrence: None)
  Receive Date: 20100923
  Receipt Date: 20100915
  Transmission Date: 20110219
  Serious: Yes (Other)
  Sender: FDA-Public Use
  Company Number: US-PFIZER INC-2010117106

PATIENT
  Sex: Male
  Weight: 99.773 kg

DRUGS (1)
  1. VIAGRA [Suspect]
     Dosage: 300 MG, SINGLE
     Route: 048
     Dates: start: 20100915

REACTIONS (3)
  - INTENTIONAL DRUG MISUSE [None]
  - PAINFUL ERECTION [None]
  - PENILE SWELLING [None]
